FAERS Safety Report 6855902-3 (Version None)
Quarter: 2010Q3

REPORT INFORMATION
  Report Type: 
  Country: None (occurrence: None)
  Receive Date: 20100719
  Receipt Date: 20100714
  Transmission Date: 20110219
  Serious: Yes (Death)
  Sender: FDA-Public Use
  Company Number: DE-EISAI INC.-E2020-07045-CLI-DE

PATIENT
  Age: 89 Year
  Sex: Female
  Weight: 58 kg

DRUGS (5)
  1. ARICEPT [Suspect]
     Route: 048
     Dates: start: 20091028, end: 20100101
  2. DOXEPIN HCL [Concomitant]
     Route: 048
     Dates: start: 20080801
  3. RISPERDON [Concomitant]
     Dates: start: 20080801
  4. DIURETICS [Concomitant]
  5. ANTIHYPERTENSIVES [Concomitant]

REACTIONS (1)
  - CEREBROVASCULAR ACCIDENT [None]
